FAERS Safety Report 9840480 (Version 1)
Quarter: 2014Q1

REPORT INFORMATION
  Report Type: Report from Study
  Country: US (occurrence: US)
  Receive Date: 20140124
  Receipt Date: 20140124
  Transmission Date: 20141002
  Serious: Yes (Other)
  Sender: FDA-Public Use
  Company Number: US-ALEXION-A201102103

PATIENT
  Age: 16 Year
  Sex: Female

DRUGS (1)
  1. SOLIRIS [Suspect]
     Indication: HAEMOLYTIC URAEMIC SYNDROME
     Dosage: UNK
     Route: 042

REACTIONS (3)
  - Packed red blood cell transfusion [Not Recovered/Not Resolved]
  - Dialysis [Not Recovered/Not Resolved]
  - Blood product transfusion dependent [Not Recovered/Not Resolved]
